FAERS Safety Report 10575889 (Version 1)
Quarter: 2014Q4

REPORT INFORMATION
  Report Type: Spontaneous
  Country: US (occurrence: None)
  Receive Date: 20141110
  Receipt Date: 20141110
  Transmission Date: 20150529
  Serious: Yes (Hospitalization)
  Sender: FDA-Public Use
  Company Number: None

PATIENT
  Age: 16 Year
  Sex: Female
  Weight: 52 kg

DRUGS (1)
  1. CLINDAMYCIN [Suspect]
     Active Substance: CLINDAMYCIN\CLINDAMYCIN PHOSPHATE
     Indication: PERIORBITAL CELLULITIS
     Route: 048
     Dates: start: 20141015, end: 20141022

REACTIONS (3)
  - Chest pain [None]
  - Oropharyngeal pain [None]
  - Oesophagitis [None]

NARRATIVE: CASE EVENT DATE: 20141016
